FAERS Safety Report 13827675 (Version 1)
Quarter: 2017Q3

REPORT INFORMATION
  Report Type: Report from Study
  Country: CA (occurrence: CA)
  Receive Date: 20170803
  Receipt Date: 20170803
  Transmission Date: 20171127
  Serious: Yes (Other)
  Sender: FDA-Public Use
  Company Number: CA-AMGEN-CANSL2015081430

PATIENT
  Age: 54 Year
  Sex: Female
  Weight: 46.26 kg

DRUGS (6)
  1. ATIVAN [Concomitant]
     Active Substance: LORAZEPAM
     Dosage: 1 MG, 2-3 TIMES A DAY
     Route: 048
  2. PROLIA [Suspect]
     Active Substance: DENOSUMAB
     Indication: OSTEOPOROSIS POSTMENOPAUSAL
     Dosage: 60 MG, UNK
     Route: 065
     Dates: start: 20130702
  3. VITAMIN D [Concomitant]
     Active Substance: CHOLECALCIFEROL
     Dosage: UNK
  4. ADVIL [Concomitant]
     Active Substance: IBUPROFEN
     Indication: PAIN
     Dosage: (AS REQUIRED)
  5. TYNELOL [Concomitant]
     Active Substance: ACETAMINOPHEN
     Dosage: 500 MG, UNK
  6. CALCIUM [Concomitant]
     Active Substance: CALCIUM
     Dosage: UNK

REACTIONS (12)
  - Sternal fracture [Unknown]
  - Back pain [Unknown]
  - Injection site inflammation [Unknown]
  - Hot flush [Unknown]
  - Rib fracture [Unknown]
  - Contusion [Not Recovered/Not Resolved]
  - Ecchymosis [Unknown]
  - Injury [Unknown]
  - Erythema [Unknown]
  - Increased tendency to bruise [Not Recovered/Not Resolved]
  - Cough [Unknown]
  - Feeling hot [Recovered/Resolved]

NARRATIVE: CASE EVENT DATE: 2014
